FAERS Safety Report 4922429-5 (Version None)
Quarter: 2006Q1

REPORT INFORMATION
  Report Type: 
  Country: None (occurrence: None)
  Receive Date: 20060224
  Receipt Date: 20060216
  Transmission Date: 20060701
  Serious: Yes (Death)
  Sender: FDA-Public Use
  Company Number: US-JNJFOC-20060203871

PATIENT
  Sex: Female

DRUGS (7)
  1. INFLIXIMAB [Suspect]
     Indication: RHEUMATOID ARTHRITIS
     Route: 042
  2. METHOTREXATE [Concomitant]
  3. CELEBREX [Concomitant]
  4. PREDNISONE [Concomitant]
  5. METOPROLOL [Concomitant]
  6. FOLIC ACID [Concomitant]
  7. CALCIUM GLUCONATE [Concomitant]

REACTIONS (1)
  - DEATH [None]
